FAERS Safety Report 14448690 (Version 1)
Quarter: 2018Q1

REPORT INFORMATION
  Report Type: Spontaneous
  Country: HR (occurrence: HR)
  Receive Date: 20180126
  Receipt Date: 20180126
  Transmission Date: 20180509
  Serious: Yes (Hospitalization)
  Sender: FDA-Public Use
  Company Number: HR-PFIZER INC-2018036100

PATIENT
  Age: 14 Year
  Sex: Female
  Weight: 22 kg

DRUGS (1)
  1. NEURONTIN [Suspect]
     Active Substance: GABAPENTIN
     Indication: EPILEPSY
     Dosage: 300 MG, 1X/DAY (3*1)
     Route: 048
     Dates: start: 20171110

REACTIONS (5)
  - Epilepsy [Recovered/Resolved with Sequelae]
  - Condition aggravated [Recovered/Resolved with Sequelae]
  - Restlessness [Recovered/Resolved with Sequelae]
  - Muscle spasms [Recovered/Resolved with Sequelae]
  - Increased bronchial secretion [Recovered/Resolved with Sequelae]

NARRATIVE: CASE EVENT DATE: 20171222
